FAERS Safety Report 21843348 (Version 1)
Quarter: 2023Q1

REPORT INFORMATION
  Report Type: Spontaneous
  Country: US (occurrence: US)
  Receive Date: 20230110
  Receipt Date: 20230110
  Transmission Date: 20230417
  Serious: No
  Sender: FDA-Public Use
  Company Number: US-PARI RESPIRATORY EQUIPMENT, INC.-2021PAR00068

PATIENT
  Age: 12 Year
  Sex: Male

DRUGS (3)
  1. KITABIS PAK [Suspect]
     Active Substance: TOBRAMYCIN
     Indication: Pseudomonas infection
     Dosage: 1 AMPULE (300 MG), 2X/DAY 28/56 DAYS
     Dates: start: 20181009
  2. KITABIS PAK [Suspect]
     Active Substance: TOBRAMYCIN
     Indication: Burkholderia mallei infection
  3. KITABIS PAK [Suspect]
     Active Substance: TOBRAMYCIN
     Indication: Burkholderia pseudomallei infection

REACTIONS (2)
  - Urinary tract infection [Unknown]
  - Off label use [Not Recovered/Not Resolved]

NARRATIVE: CASE EVENT DATE: 20181009
